FAERS Safety Report 5403284-6 (Version None)
Quarter: 2007Q3

REPORT INFORMATION
  Report Type: 
  Country: None (occurrence: None)
  Receive Date: 20070801
  Receipt Date: 20070720
  Transmission Date: 20080115
  Serious: Yes (Other)
  Sender: FDA-Public Use
  Company Number: KR-PFIZER INC-2007062561

PATIENT
  Age: 33 Year
  Sex: Female

DRUGS (7)
  1. SILDENAFIL (PAH) [Suspect]
     Indication: PULMONARY HYPERTENSION
     Dosage: DAILY DOSE:200MG
     Route: 048
  2. CYCLOSPORINE [Concomitant]
  3. PREDNISOLONE [Concomitant]
  4. NIFEDIPINE [Concomitant]
  5. WARFARIN SODIUM [Concomitant]
  6. CYCLOPHOSPHAMIDE [Concomitant]
  7. METHOTREXATE [Concomitant]

REACTIONS (4)
  - CHEST DISCOMFORT [None]
  - DYSPNOEA EXERTIONAL [None]
  - HOT FLUSH [None]
  - PULMONARY ARTERIAL PRESSURE INCREASED [None]
